FAERS Safety Report 7269335-1 (Version None)
Quarter: 2011Q1

REPORT INFORMATION
  Report Type: 
  Country: None (occurrence: None)
  Receive Date: 20110124
  Receipt Date: 20110120
  Transmission Date: 20110831
  Serious: Yes (Disabling)
  Sender: FDA-Public Use
  Company Number: 2010SP057173

PATIENT
  Age: 48 Year
  Sex: Male
  Weight: 76 kg

DRUGS (9)
  1. FUROSEMIDE [Concomitant]
  2. EQUANIL [Concomitant]
  3. REBETOL [Suspect]
     Indication: HEPATITIS C
     Dosage: 1000 MG;QD
     Dates: start: 20100609, end: 20100720
  4. CYMBALTA [Concomitant]
  5. OMEPRAZOLE [Concomitant]
  6. KREDEX [Concomitant]
  7. SUBUTEX [Concomitant]
  8. SEROPLEX [Concomitant]
  9. VIRAFERONPEG [Suspect]
     Indication: HEPATITIS C
     Dosage: 120 MCG;QW;SC
     Route: 058
     Dates: start: 20100609, end: 20100720

REACTIONS (6)
  - INDURATION [None]
  - MYALGIA [None]
  - POLYNEUROPATHY ALCOHOLIC [None]
  - ERYTHEMA [None]
  - MYOSITIS [None]
  - GAIT DISTURBANCE [None]
